FAERS Safety Report 5109367-2 (Version None)
Quarter: 2006Q3

REPORT INFORMATION
  Report Type: 
  Country: None (occurrence: None)
  Receive Date: 20060920
  Receipt Date: 20060822
  Transmission Date: 20061208
  Serious: Yes (Life-Threatening, Hospitalization)
  Sender: FDA-Public Use
  Company Number: FR-BRISTOL-MYERS SQUIBB COMPANY-13491147

PATIENT
  Age: 21 Year
  Sex: Male

DRUGS (2)
  1. ATENOLOL [Suspect]
     Indication: LONG QT SYNDROME CONGENITAL
     Route: 048
  2. CORGARD [Suspect]
     Indication: LONG QT SYNDROME CONGENITAL
     Dosage: CORGARD WAS RE-INTRODUCED AFTER STOPPING ATENOLOL; (50MG BID FIRST THEN 120MG BID WHEN DISCHARGED)
     Route: 048
     Dates: end: 20060801

REACTIONS (7)
  - CARDIAC ARREST [None]
  - CIRCULATORY COLLAPSE [None]
  - ELECTROCARDIOGRAM QRS COMPLEX SHORTENED [None]
  - ELECTROCARDIOGRAM QT PROLONGED [None]
  - HYPOKALAEMIA [None]
  - SYNCOPE [None]
  - TORSADE DE POINTES [None]
